FAERS Safety Report 21101076 (Version 1)
Quarter: 2022Q3

REPORT INFORMATION
  Report Type: Spontaneous
  Country: FR (occurrence: FR)
  Receive Date: 20220719
  Receipt Date: 20220719
  Transmission Date: 20221027
  Serious: Yes (Life-Threatening, Other)
  Sender: FDA-Public Use
  Company Number: None

PATIENT
  Age: 73 Year
  Sex: Female
  Weight: 78 kg

DRUGS (1)
  1. THYMOGLOBULINE [Suspect]
     Active Substance: LAPINE T-LYMPHOCYTE IMMUNE GLOBULIN
     Indication: Prophylaxis against transplant rejection
     Dosage: UNSPECIFIED
     Route: 042
     Dates: start: 20220603, end: 20220603

REACTIONS (6)
  - Anaemia [Not Recovered/Not Resolved]
  - Thrombocytopenia [Recovered/Resolved]
  - Tachycardia [Not Recovered/Not Resolved]
  - Hypotension [Not Recovered/Not Resolved]
  - Wrong rate [Unknown]
  - Medication error [Unknown]

NARRATIVE: CASE EVENT DATE: 20220603
